FAERS Safety Report 8043673-7 (Version None)
Quarter: 2012Q1

REPORT INFORMATION
  Report Type: 
  Country: None (occurrence: None)
  Receive Date: 20120112
  Receipt Date: 20120105
  Transmission Date: 20120608
  Serious: Yes (Hospitalization)
  Sender: FDA-Public Use
  Company Number: CN-MERCK-1201CHN00037

PATIENT
  Age: 55 Year
  Sex: Female

DRUGS (8)
  1. CYCLOSPORINE [Suspect]
     Route: 048
     Dates: start: 20080404, end: 20080406
  2. CYCLOSPORINE [Suspect]
     Route: 048
     Dates: start: 20080407, end: 20080429
  3. ZOCOR [Suspect]
     Route: 048
     Dates: start: 20080404, end: 20080508
  4. CYCLOSPORINE [Suspect]
     Route: 048
     Dates: start: 20080430, end: 20080507
  5. PREDNISONE [Concomitant]
     Route: 048
     Dates: start: 20080101
  6. MYCOPHENOLATE MOFETIL [Concomitant]
     Route: 048
     Dates: start: 20080101
  7. FLUVASTATIN SODIUM [Concomitant]
     Route: 048
     Dates: start: 20080306, end: 20080403
  8. CYCLOSPORINE [Suspect]
     Route: 048
     Dates: start: 20080323, end: 20080403

REACTIONS (5)
  - DRUG INTERACTION [None]
  - LABORATORY TEST ABNORMAL [None]
  - MYOPATHY [None]
  - BLOOD LACTATE DEHYDROGENASE INCREASED [None]
  - MYALGIA [None]
